FAERS Safety Report 9501872 (Version 6)
Quarter: 2013Q4

REPORT INFORMATION
  Report Type: Spontaneous
  Country: IT (occurrence: IT)
  Receive Date: 20130905
  Receipt Date: 20131105
  Transmission Date: 20140711
  Serious: Yes (Hospitalization)
  Sender: FDA-Public Use
  Company Number: IT-VERTEX PHARMACEUTICALS INC-2013-009313

PATIENT
  Age: 66 Year
  Sex: Female
  Weight: 65 kg

DRUGS (10)
  1. INCIVO [Suspect]
     Indication: CHRONIC HEPATITIS C
     Dosage: 375 MG 3 TABLETS X 2/DAY
     Route: 048
     Dates: start: 20130517, end: 20130726
  2. PEGASYS [Suspect]
     Indication: CHRONIC HEPATITIS C
     Dosage: DOSAGE FORM: SOLUTION FOR INJECTION
     Route: 058
     Dates: start: 20130517, end: 20130903
  3. PEGASYS [Suspect]
     Dosage: UNK
     Route: 058
  4. REBETOL [Suspect]
     Indication: CHRONIC HEPATITIS C
     Dosage: 1000 MG, UNK
     Route: 048
  5. REBETOL [Suspect]
     Dosage: DOSAGE FORM: CAPSULE, HARD
     Route: 048
     Dates: start: 20130517, end: 20130903
  6. REBETOL [Suspect]
     Dosage: UNK
     Route: 048
  7. MOXIFLOXACIN HYDROCHLORIDE [Concomitant]
     Indication: PYREXIA
     Dosage: DOSAGE FORM: UNSPECIFIED
     Route: 065
     Dates: start: 20130719, end: 20130720
  8. MOXIFLOXACIN HYDROCHLORIDE [Concomitant]
     Indication: OROPHARYNGEAL PAIN
  9. L-THYROXINE (LEVOTHYROXINE-SODIUM) [Concomitant]
     Indication: HYPOTHYROIDISM
     Dosage: DOSAGE FORM: UNSPECIFIED
     Route: 065
     Dates: start: 20130712, end: 20131028
  10. NEORECORMON [Concomitant]
     Indication: ANAEMIA
     Dosage: DOSAGE FORM: UNSPECIFIED
     Route: 065
     Dates: start: 20130620, end: 20130812

REACTIONS (1)
  - Drug reaction with eosinophilia and systemic symptoms [Recovered/Resolved]
